FAERS Safety Report 8521882-8 (Version None)
Quarter: 2012Q3

REPORT INFORMATION
  Report Type: 
  Country: None (occurrence: None)
  Receive Date: 20120719
  Receipt Date: 20120711
  Transmission Date: 20120928
  Serious: Yes (Hospitalization)
  Sender: FDA-Public Use
  Company Number: US-JNJFOC-20120706218

PATIENT
  Sex: Female
  Weight: 117.94 kg

DRUGS (3)
  1. XARELTO [Suspect]
     Indication: THROMBOSIS PROPHYLAXIS
     Route: 048
     Dates: start: 20120501, end: 20120617
  2. XARELTO [Suspect]
     Indication: KNEE ARTHROPLASTY
     Route: 048
     Dates: start: 20120501, end: 20120617
  3. ASPIRIN [Suspect]
     Indication: ANTICOAGULANT THERAPY
     Route: 048

REACTIONS (5)
  - FEMUR FRACTURE [None]
  - FEELING COLD [None]
  - HYPOAESTHESIA [None]
  - FALL [None]
  - PARAESTHESIA [None]
